FAERS Safety Report 21763833 (Version 1)
Quarter: 2022Q4

REPORT INFORMATION
  Report Type: Report from Study
  Country: IE (occurrence: None)
  Receive Date: 20221222
  Receipt Date: 20221222
  Transmission Date: 20230112
  Serious: Yes (Other)
  Sender: FDA-Public Use
  Company Number: IE-Merck Healthcare KGaA-9373650

PATIENT
  Sex: Male

DRUGS (4)
  1. REBIF [Suspect]
     Active Substance: INTERFERON BETA-1A
     Indication: Relapsing-remitting multiple sclerosis
     Route: 058
     Dates: start: 20080825, end: 20091014
  2. REBIF [Suspect]
     Active Substance: INTERFERON BETA-1A
     Dates: start: 20091207
  3. REBIF [Suspect]
     Active Substance: INTERFERON BETA-1A
     Dates: start: 20160907
  4. REBIF [Suspect]
     Active Substance: INTERFERON BETA-1A
     Dates: start: 20170731

REACTIONS (1)
  - Lung neoplasm malignant [Not Recovered/Not Resolved]
